FAERS Safety Report 19172400 (Version 1)
Quarter: 2021Q2

REPORT INFORMATION
  Report Type: Spontaneous
  Country: US (occurrence: US)
  Receive Date: 20210423
  Receipt Date: 20210423
  Transmission Date: 20210717
  Serious: No
  Sender: FDA-Public Use
  Company Number: US-SA-2021SA133069

PATIENT
  Sex: Male

DRUGS (1)
  1. NASACORT [Suspect]
     Active Substance: TRIAMCINOLONE ACETONIDE

REACTIONS (4)
  - Nasal congestion [Unknown]
  - Chills [Unknown]
  - Muscle twitching [Unknown]
  - Head discomfort [Unknown]
